FAERS Safety Report 6431488-2 (Version None)
Quarter: 2009Q4

REPORT INFORMATION
  Report Type: 
  Country: None (occurrence: None)
  Receive Date: 20091106
  Receipt Date: 20091102
  Transmission Date: 20100525
  Serious: Yes (Other)
  Sender: FDA-Public Use
  Company Number: US-WYE-H11974909

PATIENT
  Sex: Female
  Weight: 63.56 kg

DRUGS (4)
  1. PREMARIN [Suspect]
     Indication: HORMONE REPLACEMENT THERAPY
     Route: 048
     Dates: start: 19931201, end: 20090801
  2. PREMARIN [Suspect]
     Route: 048
     Dates: start: 20090801, end: 20090901
  3. PREMARIN [Suspect]
     Route: 048
     Dates: start: 20090901
  4. SYNTHROID [Concomitant]

REACTIONS (2)
  - ACNE [None]
  - VENTRICULAR TACHYCARDIA [None]
